FAERS Safety Report 6468294-9 (Version None)
Quarter: 2009Q4

REPORT INFORMATION
  Report Type: 
  Country: None (occurrence: None)
  Receive Date: 20091130
  Receipt Date: 20091111
  Transmission Date: 20100525
  Serious: Yes (Other)
  Sender: FDA-Public Use
  Company Number: 2009AL007265

PATIENT
  Age: 67 Year
  Sex: Male

DRUGS (10)
  1. CETIRIZINE HCL [Suspect]
     Indication: PRURITUS
     Dosage: 10 MG; PO
     Route: 048
     Dates: start: 20090925, end: 20090929
  2. OLMESARTAN [Concomitant]
  3. LANSOPRAZOLE [Concomitant]
  4. SIMVASTATIN [Concomitant]
  5. FYBOGEL [Concomitant]
  6. DOCUSATE SODIUM [Concomitant]
  7. MORPHINE [Concomitant]
  8. TRAMADOL HCL [Concomitant]
  9. TRIMETHOPRIM [Concomitant]
  10. CODEINE [Concomitant]

REACTIONS (7)
  - AGGRESSION [None]
  - ANGER [None]
  - DIARRHOEA [None]
  - EMOTIONAL DISTRESS [None]
  - MOOD ALTERED [None]
  - PERSONALITY CHANGE [None]
  - THINKING ABNORMAL [None]
